FAERS Safety Report 12250341 (Version 5)
Quarter: 2016Q2

REPORT INFORMATION
  Report Type: Report from Study
  Country: CO (occurrence: CO)
  Receive Date: 20160408
  Receipt Date: 20160527
  Transmission Date: 20160815
  Serious: Yes (Hospitalization)
  Sender: FDA-Public Use
  Company Number: PHHY2016CO046275

PATIENT
  Age: 25 Year
  Sex: Male
  Weight: 83 kg

DRUGS (2)
  1. SANDOSTATIN LAR DEPOT [Suspect]
     Active Substance: OCTREOTIDE ACETATE
     Dosage: 2 DF (2 AMPOULES OF 30 MG), QMO
     Route: 030
  2. SANDOSTATIN LAR DEPOT [Suspect]
     Active Substance: OCTREOTIDE ACETATE
     Indication: NEUROENDOCRINE TUMOUR
     Dosage: 2 DF (2 AMPOULES OF 20 MG), QMO
     Route: 030
     Dates: start: 20120101

REACTIONS (4)
  - Intestinal perforation [Unknown]
  - Haematochezia [Recovered/Resolved]
  - Blood creatinine increased [Recovered/Resolved]
  - Back pain [Unknown]

NARRATIVE: CASE EVENT DATE: 20160330
